FAERS Safety Report 8083834-4 (Version None)
Quarter: 2012Q1

REPORT INFORMATION
  Report Type: 
  Country: None (occurrence: None)
  Receive Date: 20120128
  Receipt Date: 20110318
  Transmission Date: 20120608
  Serious: Yes (Other)
  Sender: FDA-Public Use
  Company Number: US-ABBOTT-11P-163-0702965-00

PATIENT
  Sex: Female
  Weight: 119.4 kg

DRUGS (11)
  1. SYMBICORT [Concomitant]
     Indication: PRODUCT USED FOR UNKNOWN INDICATION
  2. NEXIUM [Concomitant]
     Indication: PRODUCT USED FOR UNKNOWN INDICATION
     Route: 048
  3. NITROFURANTOIN [Concomitant]
     Indication: PROPHYLAXIS
  4. ARMODAFINIL [Concomitant]
     Indication: FUNGAL INFECTION
  5. AMBIEN CR [Concomitant]
     Indication: PRODUCT USED FOR UNKNOWN INDICATION
     Dosage: AT BEDTIME
     Route: 048
  6. PROBIOTICS [Concomitant]
     Indication: IMMUNE SYSTEM DISORDER
  7. HUMIRA [Suspect]
     Indication: RHEUMATOID ARTHRITIS
     Dates: start: 20070101, end: 20101101
  8. ALLERGY SHOT [Concomitant]
     Indication: PRODUCT USED FOR UNKNOWN INDICATION
  9. ARMODAFINIL [Concomitant]
     Indication: PROPHYLAXIS
  10. ZANTAC [Concomitant]
     Indication: PRODUCT USED FOR UNKNOWN INDICATION
     Route: 048
  11. NITROFURANTOIN [Concomitant]
     Indication: URINARY TRACT INFECTION

REACTIONS (12)
  - RHEUMATOID ARTHRITIS [None]
  - BACK PAIN [None]
  - GINGIVAL BLEEDING [None]
  - INFECTION [None]
  - TOOTH INFECTION [None]
  - SINUSITIS [None]
  - GINGIVAL PAIN [None]
  - FUNGAL INFECTION [None]
  - GINGIVITIS [None]
  - ASTHMA [None]
  - GINGIVAL PRURITUS [None]
  - POSTOPERATIVE WOUND COMPLICATION [None]
